FAERS Safety Report 5297360-9 (Version None)
Quarter: 2007Q2

REPORT INFORMATION
  Report Type: 
  Country: None (occurrence: None)
  Receive Date: 20070416
  Receipt Date: 20070403
  Transmission Date: 20071010
  Serious: Yes (Hospitalization, Other)
  Sender: FDA-Public Use
  Company Number: PHBS2007NL05873

PATIENT

DRUGS (1)
  1. EMSELEX EXTENDED RELEASE [Suspect]

REACTIONS (1)
  - ARRHYTHMIA [None]
